FAERS Safety Report 14873119 (Version 1)
Quarter: 2018Q2

REPORT INFORMATION
  Report Type: Spontaneous
  Country: FR (occurrence: FR)
  Receive Date: 20180510
  Receipt Date: 20180510
  Transmission Date: 20180711
  Serious: Yes (Other)
  Sender: FDA-Public Use
  Company Number: FR-CONCORDIA PHARMACEUTICALS INC.-GSH201805-001566

PATIENT
  Age: 79 Year
  Sex: Female

DRUGS (5)
  1. FLECAINE [Concomitant]
     Active Substance: FLECAINIDE
  2. ATENOLOL. [Concomitant]
     Active Substance: ATENOLOL
  3. PLAQUENIL [Suspect]
     Active Substance: HYDROXYCHLOROQUINE SULFATE
     Indication: SYSTEMIC LUPUS ERYTHEMATOSUS
     Route: 048
  4. TEMESTA (LORAZEPAM) [Concomitant]
     Active Substance: LORAZEPAM
  5. LEVOTHYROX [Concomitant]
     Active Substance: LEVOTHYROXINE

REACTIONS (3)
  - Nephrolithiasis [Unknown]
  - Blood pressure decreased [Unknown]
  - Somnolence [Unknown]
